FAERS Safety Report 10396222 (Version 1)
Quarter: 2014Q1

REPORT INFORMATION
  Report Type: Spontaneous
  Country: US (occurrence: None)
  Receive Date: 20130805
  Receipt Date: 20130805
  Transmission Date: 20141002
  Serious: Yes (Other)
  Sender: FDA-Public Use
  Company Number: 2012MA009668

PATIENT
  Age: 53 Year
  Sex: Female

DRUGS (10)
  1. KADIAN [Suspect]
     Indication: MYALGIA
     Route: 048
  2. TEMAZEPAM [Suspect]
     Indication: SLEEP DISORDER
     Route: 048
  3. ALPRAZOLAM [Suspect]
     Indication: STRESS
     Route: 048
  4. ALPRAZOLAM [Suspect]
     Indication: NEURALGIA
     Route: 048
  5. LYRICA [Suspect]
     Indication: NERVE COMPRESSION
     Route: 048
  6. LYRICA [Suspect]
     Indication: SPINAL OPERATION
     Route: 048
  7. HYDROCODONE W/ACETAMINOPHEN [Suspect]
     Indication: PAIN
     Route: 048
  8. PREDNISONE [Suspect]
     Indication: LOCAL SWELLING
  9. PREDNISONE [Suspect]
     Indication: PAIN
  10. UNSPECIFIED ANEMIA MEDICATION [Suspect]

REACTIONS (6)
  - Amnesia [None]
  - Oedema peripheral [None]
  - Constipation [None]
  - Increased appetite [None]
  - Weight increased [None]
  - Condition aggravated [None]
